FAERS Safety Report 7060970-2 (Version None)
Quarter: 2010Q4

REPORT INFORMATION
  Report Type: 
  Country: None (occurrence: None)
  Receive Date: 20101026
  Receipt Date: 20101015
  Transmission Date: 20110411
  Serious: Yes (Other)
  Sender: FDA-Public Use
  Company Number: FR-SHIRE-SPV1-2010-01805

PATIENT

DRUGS (1)
  1. ELAPRASE [Suspect]
     Dosage: 12 MG, 1X/WEEK
     Route: 042
     Dates: start: 20091005

REACTIONS (5)
  - HYPERSENSITIVITY [None]
  - INFUSION RELATED REACTION [None]
  - OEDEMA [None]
  - PRURITUS [None]
  - RASH [None]
